FAERS Safety Report 8309149-4 (Version None)
Quarter: 2012Q2

REPORT INFORMATION
  Report Type: 
  Country: None (occurrence: None)
  Receive Date: 20120424
  Receipt Date: 20120420
  Transmission Date: 20120825
  Serious: Yes (Death, Hospitalization, Other)
  Sender: FDA-Public Use
  Company Number: US-B.I. PHARMACEUTICALS,INC./RIDGEFIELD-2012-BP-06629BP

PATIENT
  Age: 81 Year
  Sex: Male

DRUGS (6)
  1. PRADAXA [Suspect]
     Indication: ATRIAL FIBRILLATION
     Dosage: 300 MG
     Dates: start: 20110919, end: 20120227
  2. PRADAXA [Suspect]
     Dosage: 150 MG
     Dates: start: 20120227
  3. ADVAIR INHALERS [Concomitant]
  4. AMIODARONE HCL [Concomitant]
  5. COMBIVENT [Concomitant]
  6. LEVOTHYROXINE SODIUM [Concomitant]

REACTIONS (5)
  - DEATH [None]
  - POSTOPERATIVE ILEUS [None]
  - GASTROINTESTINAL HAEMORRHAGE [None]
  - CORONARY ARTERY OCCLUSION [None]
  - BLOOD CREATINE ABNORMAL [None]
